FAERS Safety Report 6896950-7 (Version None)
Quarter: 2010Q3

REPORT INFORMATION
  Report Type: 
  Country: None (occurrence: None)
  Receive Date: 20100802
  Receipt Date: 20070302
  Transmission Date: 20110219
  Serious: No
  Sender: FDA-Public Use
  Company Number: US-PFIZER INC-2007016909

PATIENT
  Sex: Female
  Weight: 74.4 kg

DRUGS (6)
  1. LYRICA [Suspect]
     Dates: start: 20070302
  2. NAPROXEN [Concomitant]
  3. PROPACET 100 [Concomitant]
  4. RANITIDINE [Concomitant]
  5. HYDROCHLOROTHIAZIDE [Concomitant]
  6. COZAAR [Concomitant]

REACTIONS (2)
  - PRURITUS [None]
  - URTICARIA [None]
